FAERS Safety Report 7150088-2 (Version None)
Quarter: 2010Q4

REPORT INFORMATION
  Report Type: 
  Country: None (occurrence: None)
  Receive Date: 20101210
  Receipt Date: 20101129
  Transmission Date: 20110411
  Serious: Yes (Hospitalization)
  Sender: FDA-Public Use
  Company Number: US-ELI_LILLY_AND_COMPANY-US201012000042

PATIENT
  Sex: Male

DRUGS (6)
  1. ZYPREXA [Suspect]
     Indication: BIPOLAR DISORDER
     Dosage: 20 MG, DAILY (1/D)
     Dates: start: 20091001, end: 20100601
  2. ZYPREXA [Suspect]
     Dosage: 20 MG, DAILY (1/D)
  3. KLONOPIN [Concomitant]
  4. VYVANSE [Concomitant]
  5. VALIUM [Concomitant]
  6. FLUOXETINE [Concomitant]

REACTIONS (5)
  - AGGRESSION [None]
  - DELUSION [None]
  - HOSPITALISATION [None]
  - INJURY [None]
  - INSOMNIA [None]
